FAERS Safety Report 22527325 (Version 3)
Quarter: 2023Q2

REPORT INFORMATION
  Report Type: Spontaneous
  Country: BE (occurrence: BE)
  Receive Date: 20230606
  Receipt Date: 20230630
  Transmission Date: 20230722
  Serious: Yes (Death, Hospitalization, Other)
  Sender: FDA-Public Use
  Company Number: BE-GILEAD-2023-0631585

PATIENT
  Age: 41 Year
  Sex: Male
  Weight: 71 kg

DRUGS (37)
  1. YESCARTA [Suspect]
     Active Substance: AXICABTAGENE CILOLEUCEL
     Indication: Product used for unknown indication
     Route: 065
  2. SODIUM CHLORIDE [Concomitant]
     Active Substance: SODIUM CHLORIDE
  3. PANTOPRAZOLE SODIUM [Concomitant]
     Active Substance: PANTOPRAZOLE SODIUM
  4. DAPAGLIFLOZIN [Concomitant]
     Active Substance: DAPAGLIFLOZIN
  5. BEFACT FORTE [Concomitant]
  6. CALCIUM CARBONATE\CHOLECALCIFEROL [Concomitant]
     Active Substance: CALCIUM CARBONATE\CHOLECALCIFEROL
  7. ENOXAPARIN SODIUM [Concomitant]
     Active Substance: ENOXAPARIN SODIUM
  8. ALBUREX [Concomitant]
     Active Substance: ALBUMIN HUMAN
  9. BUMETANIDE [Concomitant]
     Active Substance: BUMETANIDE
  10. INSPRA [MONTELUKAST SODIUM] [Concomitant]
  11. BISOPROLOL [Concomitant]
     Active Substance: BISOPROLOL
  12. DEXAMETHASONE SODIUM PHOSPHATE [Concomitant]
     Active Substance: DEXAMETHASONE SODIUM PHOSPHATE
  13. CEFEPIME HYDROCHLORIDE [Concomitant]
     Active Substance: CEFEPIME HYDROCHLORIDE
  14. ALLOPURINOL [Concomitant]
     Active Substance: ALLOPURINOL
  15. ACETAMINOPHEN [Concomitant]
     Active Substance: ACETAMINOPHEN
  16. TRAMADOL HYDROCHLORIDE [Concomitant]
     Active Substance: TRAMADOL HYDROCHLORIDE
  17. METAMIZOLE [Concomitant]
     Active Substance: METAMIZOLE
  18. KEPPRA [Concomitant]
     Active Substance: LEVETIRACETAM
  19. MELATONIN [Concomitant]
     Active Substance: MELATONIN
  20. GANCICLOVIR [Concomitant]
     Active Substance: GANCICLOVIR
  21. DEXTROSE [Concomitant]
     Active Substance: DEXTROSE\DEXTROSE MONOHYDRATE
  22. ACTRAPID [Concomitant]
     Active Substance: INSULIN HUMAN
  23. MOVICOLON [Concomitant]
     Active Substance: POLYETHYLENE GLYCOL 3350\POTASSIUM CHLORIDE\SODIUM BICARBONATE\SODIUM CHLORIDE
  24. HYGROTON [Concomitant]
     Active Substance: CHLORTHALIDONE
  25. VANCOMYCIN [Concomitant]
     Active Substance: VANCOMYCIN
  26. VANCOMYCIN [Concomitant]
     Active Substance: VANCOMYCIN
  27. DIFLUCAN [Concomitant]
     Active Substance: FLUCONAZOLE
  28. MORPHINE [Concomitant]
     Active Substance: MORPHINE
  29. DIAMOX SEQUELS [Concomitant]
     Active Substance: ACETAZOLAMIDE
  30. IOMERON [Concomitant]
     Active Substance: IOMEPROL
  31. HUMAN RED BLOOD CELL [Concomitant]
     Active Substance: HUMAN RED BLOOD CELL
  32. PLATELETS [Concomitant]
     Active Substance: HUMAN PLATELET, ALLOGENIC
  33. FOLIC ACID [Concomitant]
     Active Substance: FOLIC ACID
  34. LEVOFLOXACIN [Concomitant]
     Active Substance: LEVOFLOXACIN
  35. DAFALGAN [Concomitant]
     Active Substance: ACETAMINOPHEN
  36. TRAMADOL HYDROCHLORIDE [Concomitant]
     Active Substance: TRAMADOL HYDROCHLORIDE
  37. AMINO ACIDS, SOURCE UNSPECIFIED [Concomitant]
     Active Substance: AMINO ACIDS, SOURCE UNSPECIFIED

REACTIONS (3)
  - Pancytopenia [Fatal]
  - Multiple organ dysfunction syndrome [Fatal]
  - Immune effector cell-associated neurotoxicity syndrome [Recovered/Resolved]

NARRATIVE: CASE EVENT DATE: 20230511
